FAERS Safety Report 9741435 (Version 2)
Quarter: 2013Q4

REPORT INFORMATION
  Report Type: Report from Study
  Country: IN (occurrence: IN)
  Receive Date: 20131209
  Receipt Date: 20131224
  Transmission Date: 20140711
  Serious: Yes (Other)
  Sender: FDA-Public Use
  Company Number: PHHY2013IN143362

PATIENT
  Age: 70 Year
  Sex: Female

DRUGS (6)
  1. ACLASTA [Suspect]
     Indication: OSTEOPOROSIS
     Dosage: 5 MG PER 100ML PER YEAR
     Route: 042
     Dates: start: 2010
  2. ACLASTA [Suspect]
     Dosage: 5 MG PER 100ML PER YEAR
     Route: 042
     Dates: start: 2011
  3. ACLASTA [Suspect]
     Dosage: 5 MG PER 100ML PER YEAR
     Route: 042
     Dates: start: 2012
  4. CALCIUM [Concomitant]
     Dosage: UNK UKN, UNK
  5. MULTIVITAMIN                       /00097801/ [Concomitant]
     Dosage: UNK UKN, UNK
  6. ANTIHYPERTENSIVE DRUGS [Concomitant]
     Indication: HYPERTENSION

REACTIONS (1)
  - Hand fracture [Recovering/Resolving]
